FAERS Safety Report 4477474-3 (Version None)
Quarter: 2004Q4

REPORT INFORMATION
  Report Type: 
  Country: None (occurrence: None)
  Receive Date: 20041018
  Receipt Date: 20041011
  Transmission Date: 20050328
  Serious: Yes (Life-Threatening, Hospitalization)
  Sender: FDA-Public Use
  Company Number: US-BRISTOL-MYERS SQUIBB COMPANY-12727863

PATIENT
  Age: 73 Year
  Sex: Male
  Weight: 136 kg

DRUGS (10)
  1. ERBITUX [Suspect]
     Indication: COLON CANCER METASTATIC
     Dosage: 10CC'S
     Route: 042
     Dates: start: 20040928, end: 20040928
  2. ATROPINE [Concomitant]
     Indication: PREMEDICATION
     Route: 042
     Dates: start: 20040928, end: 20040928
  3. CIMETIDINE [Concomitant]
     Indication: PREMEDICATION
     Route: 042
     Dates: start: 20040928, end: 20040928
  4. DEXAMETHASONE [Concomitant]
     Indication: PREMEDICATION
     Route: 042
     Dates: start: 20040928, end: 20040928
  5. DIPHENHYDRAMINE HCL [Concomitant]
     Indication: PREMEDICATION
     Route: 042
     Dates: start: 20040928, end: 20040928
  6. GRANISETRON HCL [Concomitant]
     Indication: PREMEDICATION
     Route: 042
     Dates: start: 20040928, end: 20040928
  7. FLUOROURACIL [Concomitant]
     Dates: start: 20040928
  8. IRINOTECAN [Concomitant]
     Dates: start: 20040928
  9. LEUCOVORIN CALCIUM [Concomitant]
     Dates: start: 20040928
  10. OXALIPLATIN [Concomitant]
     Dates: start: 20040928

REACTIONS (2)
  - CARDIO-RESPIRATORY ARREST [None]
  - RENAL IMPAIRMENT [None]
